FAERS Safety Report 26129433 (Version 1)
Quarter: 2025Q4

REPORT INFORMATION
  Report Type: Report from Study
  Country: US (occurrence: US)
  Receive Date: 20251208
  Receipt Date: 20251208
  Transmission Date: 20260118
  Serious: No
  Sender: BIOVITRUM
  Company Number: US-BIOVITRUM-2025-US-016751

PATIENT
  Age: 78 Year
  Sex: Female

DRUGS (3)
  1. KINERET [Suspect]
     Active Substance: ANAKINRA
     Indication: Gouty tophus
     Dosage: DAILY
     Route: 058
     Dates: start: 20250519
  2. PROCRIT [Suspect]
     Active Substance: ERYTHROPOIETIN
     Indication: Product used for unknown indication
  3. IRON [Suspect]
     Active Substance: IRON
     Indication: Product used for unknown indication

REACTIONS (3)
  - Infusion site reaction [Unknown]
  - Injection site urticaria [Unknown]
  - Injection site rash [Unknown]
